FAERS Safety Report 9257978 (Version 1)
Quarter: 2013Q2

REPORT INFORMATION
  Report Type: Spontaneous
  Country: US (occurrence: None)
  Receive Date: 20130424
  Receipt Date: 20130424
  Transmission Date: 20140414
  Serious: Yes (Disabling)
  Sender: FDA-Public Use
  Company Number: None

PATIENT
  Age: 74 Year
  Sex: Female
  Weight: 56.7 kg

DRUGS (1)
  1. KENALOG-10 INJ [Suspect]
     Indication: RASH
     Dosage: 1- INJECTION
     Dates: start: 20110217

REACTIONS (6)
  - Visual impairment [None]
  - Eye disorder [None]
  - Swelling face [None]
  - Headache [None]
  - Eye pain [None]
  - Dizziness [None]
